FAERS Safety Report 8757833 (Version 1)
Quarter: 2012Q4

REPORT INFORMATION
  Report Type: Report from Study
  Country: US (occurrence: US)
  Receive Date: 20120828
  Receipt Date: 20120828
  Transmission Date: 20130627
  Serious: Yes (Life-Threatening, Hospitalization)
  Sender: FDA-Public Use
  Company Number: US-ROCHE-1108069

PATIENT
  Age: 79 Year
  Sex: Female
  Weight: 63.5 kg

DRUGS (13)
  1. AVASTIN [Suspect]
     Indication: NON-SMALL CELL LUNG CANCER
     Dosage: LAST DOSE PRIOR TO SAE 12/SEP/2011
     Route: 042
     Dates: start: 20110801, end: 20110919
  2. CARBOPLATIN [Suspect]
     Indication: NON-SMALL CELL LUNG CANCER
     Dosage: 6 AUC, last dose prior to sae:12/sep/2011
     Route: 042
     Dates: start: 20110801, end: 20110919
  3. PACLITAXEL [Suspect]
     Indication: NON-SMALL CELL LUNG CANCER
     Dosage: last dose prior to sae:12/sep/2011
     Route: 042
     Dates: start: 20110801, end: 20110919
  4. XANAX [Concomitant]
  5. NORVASC [Concomitant]
     Dates: start: 20071221
  6. ACETYLSALICYLIC ACID [Concomitant]
     Dates: start: 20080121
  7. FAMOTIDINE [Concomitant]
     Dates: start: 20110614
  8. HYZAAR [Concomitant]
     Dates: start: 20071221
  9. ZOLPIDEM [Concomitant]
  10. FOLIC ACID [Concomitant]
     Dates: start: 20110621
  11. VITAMIN B12 [Concomitant]
     Dates: start: 20110721
  12. ALOXI [Concomitant]
     Dates: start: 20110801
  13. EMEND [Concomitant]
     Dates: start: 20110801

REACTIONS (4)
  - Tracheo-oesophageal fistula [Recovered/Resolved]
  - Pneumonia aspiration [Recovered/Resolved]
  - Hypokalaemia [Recovered/Resolved]
  - Hypophosphataemia [Recovered/Resolved]
